FAERS Safety Report 4338889-7 (Version None)
Quarter: 2004Q2

REPORT INFORMATION
  Report Type: 
  Country: None (occurrence: None)
  Receive Date: 20040409
  Receipt Date: 20040330
  Transmission Date: 20050107
  Serious: Yes (Hospitalization, Other)
  Sender: FDA-Public Use
  Company Number: 2004007670

PATIENT
  Age: 55 Year
  Sex: Female

DRUGS (1)
  1. TIKOSYN [Suspect]
     Indication: CARDIAC DISORDER

REACTIONS (1)
  - DEPRESSION [None]
